FAERS Safety Report 6073410-7 (Version None)
Quarter: 2009Q1

REPORT INFORMATION
  Report Type: 
  Country: None (occurrence: None)
  Receive Date: 20090211
  Receipt Date: 20090203
  Transmission Date: 20090719
  Serious: Yes (Other)
  Sender: FDA-Public Use
  Company Number: US-CELGENEUS-163-20785-08010195

PATIENT
  Sex: Male

DRUGS (2)
  1. THALOMID [Suspect]
     Indication: PROSTATE CANCER
     Dosage: 50- 400MG
     Route: 048
  2. GM-CSF [Suspect]
     Indication: PROSTATE CANCER
     Route: 058

REACTIONS (3)
  - DEEP VEIN THROMBOSIS [None]
  - PANCREATIC CARCINOMA [None]
  - PULMONARY EMBOLISM [None]
